FAERS Safety Report 21417725 (Version 1)
Quarter: 2022Q4

REPORT INFORMATION
  Report Type: Spontaneous
  Country: CN (occurrence: CN)
  Receive Date: 20221006
  Receipt Date: 20221006
  Transmission Date: 20230113
  Serious: Yes (Other)
  Sender: FDA-Public Use
  Company Number: CN-SA-SAC20221004001086

PATIENT
  Age: 60 Year
  Sex: Female
  Weight: 70 kg

DRUGS (2)
  1. ELOXATIN [Suspect]
     Active Substance: OXALIPLATIN
     Indication: Colon cancer
     Dosage: 180 MG, QD
     Route: 041
     Dates: start: 20220908, end: 20220908
  2. DEXTROSE [Concomitant]
     Active Substance: DEXTROSE
     Indication: Symptomatic treatment
     Dosage: 500 ML, QD
     Route: 042
     Dates: start: 20220908, end: 20220908

REACTIONS (1)
  - Asphyxia [Recovering/Resolving]

NARRATIVE: CASE EVENT DATE: 20220908
